FAERS Safety Report 20029457 (Version 2)
Quarter: 2022Q1

REPORT INFORMATION
  Report Type: Report from Study
  Country: JP (occurrence: JP)
  Receive Date: 20211103
  Receipt Date: 20220121
  Transmission Date: 20220423
  Serious: Yes (Other)
  Sender: FDA-Public Use
  Company Number: JP-OTSUKA-2015_008380

PATIENT
  Age: 30 Year
  Sex: Male
  Weight: 78 kg

DRUGS (15)
  1. TOLVAPTAN [Suspect]
     Active Substance: TOLVAPTAN
     Indication: Congenital cystic kidney disease
     Dosage: 22.5MG/DAY
     Route: 048
     Dates: start: 20200706
  2. TOLVAPTAN [Suspect]
     Active Substance: TOLVAPTAN
     Dosage: 22.5 MG, QD (MORNING)
     Route: 048
     Dates: start: 20150512, end: 20150727
  3. TOLVAPTAN [Suspect]
     Active Substance: TOLVAPTAN
     Dosage: 7.5 MG, QD(EVENING)
     Route: 048
     Dates: start: 20150512, end: 20150727
  4. TOLVAPTAN [Suspect]
     Active Substance: TOLVAPTAN
     Dosage: 30 MG/DAY(DIVIDED 2 DOSES EACH DOSE UNK)
     Route: 048
     Dates: start: 20170706, end: 20170712
  5. TOLVAPTAN [Suspect]
     Active Substance: TOLVAPTAN
     Dosage: 45 MG/DAY (DIVIDED 2 DOSES EACH DOSE UNK)
     Route: 048
     Dates: start: 20170713, end: 20171018
  6. TOLVAPTAN [Suspect]
     Active Substance: TOLVAPTAN
     Dosage: 60MG/DAY(DIVIDED 2 DOSES EACH DOSE UNK)
     Route: 048
     Dates: start: 20171019, end: 20180819
  7. TOLVAPTAN [Suspect]
     Active Substance: TOLVAPTAN
     Dosage: 45 MG/DAY(DIVIDED 2 DOSES EACH DOSE UNK)
     Route: 048
     Dates: start: 20180820, end: 20190107
  8. TOLVAPTAN [Suspect]
     Active Substance: TOLVAPTAN
     Dosage: 22.5MG/DAY(DIVIDED 2 DOSES EACH DOSE UNK)
     Route: 048
     Dates: start: 20190108, end: 20190310
  9. TOLVAPTAN [Suspect]
     Active Substance: TOLVAPTAN
     Dosage: 30 MG/DAY(DIVIDED 2 DOSES EACH DOSE UNK)
     Route: 048
     Dates: start: 20190311, end: 20190414
  10. AVAPRO [Concomitant]
     Active Substance: IRBESARTAN
     Indication: Product used for unknown indication
     Dosage: 100 MG, QD
     Route: 048
     Dates: start: 20150618
  11. CALBLOCK [Concomitant]
     Active Substance: AZELNIDIPINE
     Indication: Product used for unknown indication
     Dosage: 16 MG, QD
     Route: 048
     Dates: start: 20150727
  12. ATORVASTATIN CALCIUM TRIHYDRATE [Concomitant]
     Active Substance: ATORVASTATIN CALCIUM TRIHYDRATE
     Indication: Hypercholesterolaemia
     Dosage: 5 MG, QD
     Route: 048
     Dates: start: 20151116
  13. IRBESARTAN [Concomitant]
     Active Substance: IRBESARTAN
     Indication: Product used for unknown indication
     Dosage: 100 MG, QD
     Route: 065
  14. PEMAFIBRATE [Concomitant]
     Active Substance: PEMAFIBRATE
     Indication: Product used for unknown indication
     Dosage: 0.2 MG, QD
     Route: 048
     Dates: start: 20190930
  15. LANSOPRAZOLE [Concomitant]
     Active Substance: LANSOPRAZOLE
     Indication: Prophylaxis
     Dosage: 15 MG, QD
     Route: 048
     Dates: start: 20150604, end: 20150618

REACTIONS (5)
  - Hepatic function abnormal [Not Recovered/Not Resolved]
  - Liver disorder [Recovered/Resolved]
  - Hepatic function abnormal [Recovering/Resolving]
  - Hyperlipidaemia [Recovered/Resolved]
  - Blood triglycerides increased [Recovered/Resolved]

NARRATIVE: CASE EVENT DATE: 20150514
